FAERS Safety Report 23862075 (Version 1)
Quarter: 2024Q2

REPORT INFORMATION
  Report Type: Spontaneous
  Country: US (occurrence: None)
  Receive Date: 20240515
  Receipt Date: 20240515
  Transmission Date: 20240715
  Serious: Yes (Hospitalization)
  Sender: FDA-Public Use
  Company Number: None

PATIENT
  Sex: Female

DRUGS (3)
  1. OPSUMIT [Suspect]
     Active Substance: MACITENTAN
     Indication: Pulmonary arterial hypertension
     Dosage: FREQUENCY : DAILY;?
     Route: 048
     Dates: start: 202303
  2. ORENITRAM [Suspect]
     Active Substance: TREPROSTINIL
     Dosage: FREQUENCY : EVERY 8 HOURS;?
  3. ADEMPAS [Suspect]
     Active Substance: RIOCIGUAT
     Dosage: FREQUENCY : 3 TIMES A DAY;?

REACTIONS (1)
  - Pneumonia [None]
